FAERS Safety Report 22118028 (Version 2)
Quarter: 2023Q1

REPORT INFORMATION
  Report Type: Report from Study
  Country: IT (occurrence: None)
  Receive Date: 20230321
  Receipt Date: 20230327
  Transmission Date: 20230417
  Serious: Yes (Other)
  Sender: FDA-Public Use
  Company Number: IT-ROCHE-3312719

PATIENT
  Age: 77 Year
  Sex: Female

DRUGS (5)
  1. IBRUTINIB [Suspect]
     Active Substance: IBRUTINIB
     Indication: Marginal zone lymphoma
     Dosage: ON 13-MAR-2023 RECEIVED MOST RECENT DOSE PRIOR TO SAE.
     Route: 048
     Dates: start: 20230214
  2. RITUXIMAB [Suspect]
     Active Substance: RITUXIMAB
     Indication: Marginal zone lymphoma
     Dosage: ON 07/MAR/2023 RECEIVED MOST RECENT DOSE OF SAE.
     Route: 041
     Dates: start: 20230214
  3. ENOXAPARIN [Concomitant]
     Active Substance: ENOXAPARIN
     Dosage: 4000UI
     Route: 058
     Dates: start: 20230314, end: 20230314
  4. ELIQUIS [Concomitant]
     Active Substance: APIXABAN
     Route: 048
     Dates: start: 20230315
  5. BISOPROLOL [Concomitant]
     Active Substance: BISOPROLOL
     Route: 048
     Dates: start: 20230315

REACTIONS (1)
  - Atrial fibrillation [Recovered/Resolved]

NARRATIVE: CASE EVENT DATE: 20230314
